FAERS Safety Report 10208533 (Version 1)
Quarter: 2014Q2

REPORT INFORMATION
  Report Type: Spontaneous
  Country: US (occurrence: None)
  Receive Date: 20140529
  Receipt Date: 20140529
  Transmission Date: 20141212
  Serious: Yes (Hospitalization)
  Sender: FDA-Public Use
  Company Number: None

PATIENT
  Age: 65 Year
  Sex: Male
  Weight: 92.2 kg

DRUGS (1)
  1. DEXTROSE/HEPARIN [Suspect]
     Indication: PULMONARY EMBOLISM
     Dates: start: 20140320, end: 20140324

REACTIONS (4)
  - Hyperkalaemia [None]
  - Hypomagnesaemia [None]
  - Electrocardiogram abnormal [None]
  - International normalised ratio abnormal [None]
